FAERS Safety Report 6191683-7 (Version None)
Quarter: 2009Q2

REPORT INFORMATION
  Report Type: 
  Country: None (occurrence: None)
  Receive Date: 20090515
  Receipt Date: 20090512
  Transmission Date: 20091009
  Serious: Yes (Other)
  Sender: FDA-Public Use
  Company Number: PHHY2009IT18136

PATIENT

DRUGS (5)
  1. CYCLOSPORINE [Suspect]
     Indication: HEART TRANSPLANT
  2. TACROLIMUS [Suspect]
  3. MYCOPHENOLATE MOFETIL [Suspect]
  4. STEROIDS NOS [Concomitant]
     Route: 042
  5. STEROIDS NOS [Concomitant]
     Route: 048

REACTIONS (13)
  - BLOOD CULTURE POSITIVE [None]
  - BRADYCARDIA [None]
  - CARDIAC PACEMAKER INSERTION [None]
  - DEVICE RELATED INFECTION [None]
  - HEART TRANSPLANT REJECTION [None]
  - PERICARDIAL EFFUSION [None]
  - PNEUMONIA [None]
  - POST PROCEDURAL HAEMORRHAGE [None]
  - PULMONARY CONGESTION [None]
  - PYREXIA [None]
  - STAPHYLOCOCCAL INFECTION [None]
  - SURGERY [None]
  - VASCULAR PSEUDOANEURYSM [None]
